FAERS Safety Report 11450499 (Version 1)
Quarter: 2015Q3

REPORT INFORMATION
  Report Type: Spontaneous
  Country: US (occurrence: US)
  Receive Date: 20150903
  Receipt Date: 20150903
  Transmission Date: 20151125
  Serious: No
  Sender: FDA-Public Use
  Company Number: US-ROCHE-789941

PATIENT
  Sex: Female

DRUGS (2)
  1. RIBAVIN [Suspect]
     Active Substance: RIBAVIRIN
     Indication: CHRONIC HEPATITIS C
     Dosage: DRUG REPORTED AS: RIBAVIRIN ^3 RIVERS^.DIVIDED DOSES, ANTICIPATED LENGTH OF THERAPY: 24 WEEKS.
     Route: 048
     Dates: start: 20110625, end: 20111209
  2. PEGASYS [Suspect]
     Active Substance: PEGINTERFERON ALFA-2A
     Indication: CHRONIC HEPATITIS C
     Dosage: ANTICIPATED LENGTH OF THERAPY: 24 WEEKS.
     Route: 058
     Dates: start: 20110625, end: 20111209

REACTIONS (4)
  - Blister [Unknown]
  - Vascular rupture [Unknown]
  - Myalgia [Unknown]
  - Osteoporosis [Unknown]
